FAERS Safety Report 4556836-X (Version None)
Quarter: 2005Q1

REPORT INFORMATION
  Report Type: 
  Country: None (occurrence: None)
  Receive Date: 20050120
  Receipt Date: 20050111
  Transmission Date: 20050727
  Serious: Yes (Hospitalization)
  Sender: FDA-Public Use
  Company Number: US-JNJFOC-20050103063

PATIENT
  Age: 61 Year
  Sex: Female

DRUGS (3)
  1. SPORANOX [Suspect]
     Indication: BLASTOMYCOSIS
     Route: 049
     Dates: start: 20041101
  2. BACTRIM [Concomitant]
  3. BACTRIM [Concomitant]

REACTIONS (2)
  - HOSPITALISATION [None]
  - INTUBATION [None]
